FAERS Safety Report 6246150-9 (Version None)
Quarter: 2009Q2

REPORT INFORMATION
  Report Type: 
  Country: None (occurrence: None)
  Receive Date: 20090626
  Receipt Date: 20090504
  Transmission Date: 20091009
  Serious: No
  Sender: FDA-Public Use
  Company Number: A0782362A

PATIENT
  Sex: Female

DRUGS (11)
  1. IMITREX [Suspect]
     Indication: MIGRAINE
     Dosage: 100MG AS REQUIRED
     Route: 048
  2. INSULIN [Concomitant]
  3. NOVOLOG [Concomitant]
  4. SINGULAIR [Concomitant]
  5. LASIX [Concomitant]
  6. METFORMIN HCL [Concomitant]
  7. VYTORIN [Concomitant]
  8. DIOVAN [Concomitant]
  9. CALCIUM [Concomitant]
  10. ASPIRIN [Concomitant]
  11. METOCLOPRAMIDE [Concomitant]

REACTIONS (2)
  - DRUG INEFFECTIVE [None]
  - EYE PAIN [None]
